FAERS Safety Report 7209505-1 (Version None)
Quarter: 2011Q1

REPORT INFORMATION
  Report Type: 
  Country: None (occurrence: None)
  Receive Date: 20110104
  Receipt Date: 20101229
  Transmission Date: 20110831
  Serious: Yes (Death, Life-Threatening, Other)
  Sender: FDA-Public Use
  Company Number: PHEH2006US05809

PATIENT
  Sex: Female
  Weight: 68.027 kg

DRUGS (6)
  1. ANTINEOPLASTIC AGENTS [Concomitant]
  2. NORMODYNE [Concomitant]
  3. ZOMETA [Suspect]
     Indication: NEOPLASM MALIGNANT
  4. CELEBREX [Concomitant]
  5. PROCRIT [Concomitant]
  6. NEXIUM [Concomitant]

REACTIONS (37)
  - TOOTH ABSCESS [None]
  - ATELECTASIS [None]
  - HYPONATRAEMIA [None]
  - THROMBOSIS [None]
  - HIATUS HERNIA [None]
  - BONE DISORDER [None]
  - PRIMARY SEQUESTRUM [None]
  - PURULENT DISCHARGE [None]
  - ERYTHEMA [None]
  - DEPRESSED LEVEL OF CONSCIOUSNESS [None]
  - PLEURAL EFFUSION [None]
  - HEPATIC LESION [None]
  - SWELLING [None]
  - JAW DISORDER [None]
  - DECUBITUS ULCER [None]
  - PERICARDIAL EFFUSION [None]
  - BLOOD POTASSIUM INCREASED [None]
  - CARDIOMEGALY [None]
  - ARTERIOSCLEROSIS [None]
  - ORAL INFECTION [None]
  - TOOTHACHE [None]
  - CORONARY ARTERY DISEASE [None]
  - STOMATITIS [None]
  - ADRENAL NEOPLASM [None]
  - VASCULAR CALCIFICATION [None]
  - NEOPLASM MALIGNANT [None]
  - DENTAL CARIES [None]
  - OSTEONECROSIS OF JAW [None]
  - FISTULA [None]
  - RESPIRATORY DISTRESS [None]
  - HYPERCAPNIA [None]
  - HYPOKALAEMIA [None]
  - NAUSEA [None]
  - DYSPNOEA [None]
  - UNRESPONSIVE TO STIMULI [None]
  - CARDIAC FAILURE CONGESTIVE [None]
  - MALIGNANT PLEURAL EFFUSION [None]
